FAERS Safety Report 6488289-9 (Version None)
Quarter: 2009Q4

REPORT INFORMATION
  Report Type: 
  Country: None (occurrence: None)
  Receive Date: 20091210
  Receipt Date: 20090826
  Transmission Date: 20100525
  Serious: No
  Sender: FDA-Public Use
  Company Number: US-AMGEN-KDL361820

PATIENT
  Sex: Female

DRUGS (3)
  1. ENBREL [Suspect]
     Indication: RHEUMATOID ARTHRITIS
     Route: 058
     Dates: start: 20090723, end: 20090813
  2. LEFLUNOMIDE [Concomitant]
  3. MINOCYCLINE [Concomitant]
     Route: 048
     Dates: start: 20090201

REACTIONS (2)
  - DISTURBANCE IN ATTENTION [None]
  - FEELING JITTERY [None]
